FAERS Safety Report 16976246 (Version 1)
Quarter: 2019Q4

REPORT INFORMATION
  Report Type: Spontaneous
  Country: CA (occurrence: CA)
  Receive Date: 20191030
  Receipt Date: 20191030
  Transmission Date: 20200122
  Serious: Yes (Hospitalization, Other)
  Sender: FDA-Public Use
  Company Number: CA-APOPHARMA INC-2019AP023979

PATIENT
  Age: 49 Year
  Sex: Female
  Weight: 55 kg

DRUGS (11)
  1. FERRIPROX [Suspect]
     Active Substance: DEFERIPRONE
     Dosage: 36 MG/KG, BID
     Route: 048
     Dates: start: 20190919, end: 20191006
  2. ATIVAN [Concomitant]
     Active Substance: LORAZEPAM
     Indication: PRODUCT USED FOR UNKNOWN INDICATION
     Dosage: 1 MG, Q.H.S.
     Route: 065
  3. ADVIL [Concomitant]
     Active Substance: IBUPROFEN
     Indication: PRODUCT USED FOR UNKNOWN INDICATION
     Route: 065
  4. VITAMIN D                          /00107901/ [Concomitant]
     Active Substance: ERGOCALCIFEROL
     Indication: PRODUCT USED FOR UNKNOWN INDICATION
     Route: 065
  5. INSULIN DEGLUDEC [Concomitant]
     Active Substance: INSULIN DEGLUDEC
     Indication: TYPE 2 DIABETES MELLITUS
     Route: 058
  6. DENOSUMAB [Concomitant]
     Active Substance: DENOSUMAB
     Indication: BONE DENSITY DECREASED
     Dosage: 60 MG, OTHER
     Route: 058
  7. TYLENOL [Concomitant]
     Active Substance: ACETAMINOPHEN
     Indication: PRODUCT USED FOR UNKNOWN INDICATION
     Dosage: UNK, PRN
     Route: 065
  8. PANTOPRAZOLE [Concomitant]
     Active Substance: PANTOPRAZOLE
     Indication: PRODUCT USED FOR UNKNOWN INDICATION
     Dosage: 40 MG, QD
     Route: 048
  9. FERRIPROX [Suspect]
     Active Substance: DEFERIPRONE
     Indication: THALASSAEMIA
     Dosage: 18 MG/KG, TID
     Route: 048
     Dates: start: 20190908, end: 20190912
  10. FERRIPROX [Suspect]
     Active Substance: DEFERIPRONE
     Dosage: 27 MG/KG, BID
     Route: 048
     Dates: start: 20190912, end: 20190919
  11. NICOTINE. [Concomitant]
     Active Substance: NICOTINE
     Indication: PRODUCT USED FOR UNKNOWN INDICATION
     Route: 065

REACTIONS (10)
  - Fatigue [Unknown]
  - Agranulocytosis [Recovered/Resolved]
  - Human rhinovirus test positive [Unknown]
  - Oropharyngeal pain [Unknown]
  - Malaise [Unknown]
  - Productive cough [Unknown]
  - Pharyngitis [Unknown]
  - Pyrexia [Recovered/Resolved]
  - Enterovirus test positive [Unknown]
  - Odynophagia [Unknown]

NARRATIVE: CASE EVENT DATE: 201910
